FAERS Safety Report 5627870-3 (Version None)
Quarter: 2008Q1

REPORT INFORMATION
  Report Type: 
  Country: None (occurrence: None)
  Receive Date: 20080214
  Receipt Date: 20080214
  Transmission Date: 20080703
  Serious: Yes (Hospitalization)
  Sender: FDA-Public Use
  Company Number: None

PATIENT
  Sex: Female
  Weight: 105.1 kg

DRUGS (2)
  1. TEMOZOLOMIDE [Suspect]
     Dosage: 3570 MG
  2. DILANTIN [Concomitant]

REACTIONS (3)
  - AGITATION [None]
  - NO THERAPEUTIC RESPONSE [None]
  - STATUS EPILEPTICUS [None]
